FAERS Safety Report 16148287 (Version 1)
Quarter: 2019Q2

REPORT INFORMATION
  Report Type: Report from Study
  Country: None (occurrence: BR)
  Receive Date: 20190402
  Receipt Date: 20190402
  Transmission Date: 20190711
  Serious: Yes (Other)
  Sender: FDA-Public Use
  Company Number: BR-ABBVIE-19K-020-2726963-00

PATIENT
  Sex: Female

DRUGS (2)
  1. HUMIRA [Suspect]
     Active Substance: ADALIMUMAB
     Indication: CROHN^S DISEASE
     Route: 058
     Dates: start: 20151222
  2. HUMIRA [Suspect]
     Active Substance: ADALIMUMAB
     Route: 058
     Dates: start: 20190320, end: 20190320

REACTIONS (6)
  - Fistula discharge [Unknown]
  - Pain of skin [Unknown]
  - Gastrointestinal fistula [Unknown]
  - Furuncle [Unknown]
  - Tooth extraction [Unknown]
  - Speech disorder [Unknown]
